FAERS Safety Report 4984825-X (Version None)
Quarter: 2006Q2

REPORT INFORMATION
  Report Type: 
  Country: None (occurrence: None)
  Receive Date: 20060419
  Receipt Date: 20060406
  Transmission Date: 20061013
  Serious: Yes (Hospitalization, Other)
  Sender: FDA-Public Use
  Company Number: AT200604000946

PATIENT
  Age: 47 Year
  Sex: Male

DRUGS (1)
  1. ALIMTA [Suspect]
     Dosage: 1000 MG,

REACTIONS (1)
  - SUPRAVENTRICULAR TACHYCARDIA [None]
